FAERS Safety Report 16792022 (Version 1)
Quarter: 2019Q3

REPORT INFORMATION
  Report Type: Spontaneous
  Country: BR (occurrence: BR)
  Receive Date: 20190910
  Receipt Date: 20190910
  Transmission Date: 20191005
  Serious: Yes (Other)
  Sender: FDA-Public Use
  Company Number: BR-SA-2019SA033144

PATIENT
  Age: 31 Year
  Sex: Female
  Weight: 84 kg

DRUGS (6)
  1. NOVORAPID [Concomitant]
     Active Substance: INSULIN ASPART
     Dosage: 10 IU, AT LUNCH
     Route: 065
  2. CLENIL HFA [Concomitant]
     Indication: ASTHMA
     Dosage: EVERY 8 HOURS (SHE ASPIRED AND RELEASED)
     Route: 048
     Dates: start: 201901
  3. LANTUS SOLOSTAR [Suspect]
     Active Substance: INSULIN GLARGINE
     Indication: BLOOD GLUCOSE INCREASED
     Dosage: 24 U, QD
     Route: 065
     Dates: start: 20190117
  4. LANTUS SOLOSTAR [Suspect]
     Active Substance: INSULIN GLARGINE
     Dosage: 32 UI IN THE MORNING AND 20 AT NIGHT
     Route: 065
  5. LEVOTHYROXINE SODIUM. [Suspect]
     Active Substance: LEVOTHYROXINE SODIUM
     Indication: THYROID DISORDER
     Dosage: UNK UNK, QD
     Route: 048
     Dates: start: 2009
  6. EUTHYROX [Concomitant]
     Active Substance: LEVOTHYROXINE SODIUM
     Indication: THYROID DISORDER
     Dosage: UNK UNK, QD
     Route: 048
     Dates: start: 2009

REACTIONS (4)
  - Anaemia [Recovered/Resolved]
  - Exposure during pregnancy [Unknown]
  - Blood glucose increased [Unknown]
  - Inappropriate schedule of product administration [Unknown]
